FAERS Safety Report 8583676 (Version 5)
Quarter: 2013Q1

REPORT INFORMATION
  Report Type: Spontaneous
  Country: US (occurrence: US)
  Receive Date: 20120529
  Receipt Date: 20130206
  Transmission Date: 20140127
  Serious: Yes (Hospitalization)
  Sender: FDA-Public Use
  Company Number: US-GLAXOSMITHKLINE-A0927980A

PATIENT
  Sex: Female
  Weight: 67.1 kg

DRUGS (8)
  1. FLOLAN [Suspect]
     Indication: PULMONARY ARTERIAL HYPERTENSION
     Dosage: 61.6NGKM CONTINUOUS
     Route: 065
     Dates: start: 20070524
  2. ADVAIR [Concomitant]
  3. DIGOXIN [Concomitant]
  4. IMODIUM AD [Concomitant]
  5. LYRICA [Concomitant]
  6. OXYGEN [Concomitant]
  7. SPIRIVA [Concomitant]
  8. WARFARIN SODIUM [Concomitant]

REACTIONS (6)
  - Blood alkaline phosphatase increased [Recovered/Resolved]
  - Cellulitis [Recovered/Resolved]
  - Fluid retention [Recovered/Resolved]
  - Cellulitis orbital [Recovered/Resolved]
  - Renal failure acute [Recovered/Resolved]
  - Spinal fracture [Unknown]
